FAERS Safety Report 10996868 (Version 2)
Quarter: 2015Q2

REPORT INFORMATION
  Report Type: Spontaneous
  Country: US (occurrence: US)
  Receive Date: 20150408
  Receipt Date: 20150618
  Transmission Date: 20150821
  Serious: Yes (Hospitalization, Other)
  Sender: FDA-Public Use
  Company Number: US-INCYTE CORPORATION-2015IN001363

PATIENT
  Age: 60 Year
  Sex: Female
  Weight: 73.3 kg

DRUGS (14)
  1. IMITREX [Concomitant]
     Active Substance: SUMATRIPTAN\SUMATRIPTAN SUCCINATE
     Dosage: 50 MG, PRN
     Route: 048
  2. CITALOPRAM [Concomitant]
     Active Substance: CITALOPRAM HYDROBROMIDE
     Dosage: 20 MG, QD
     Route: 048
  3. OMEPRAZOLE. [Concomitant]
     Active Substance: OMEPRAZOLE
     Dosage: 20 MG, QD
     Route: 048
  4. CLONAZEPAM. [Concomitant]
     Active Substance: CLONAZEPAM
     Dosage: 0.5 MG, BID
     Route: 048
  5. PROVENTIL                          /00139501/ [Concomitant]
     Dosage: 2 PUFFS QID PRN
  6. VITAMIN B12 [Concomitant]
     Active Substance: CYANOCOBALAMIN
     Dosage: 1000 MCG, QD
     Route: 048
  7. VITAMIN C [Concomitant]
     Active Substance: ASCORBIC ACID
  8. DULOXETINE [Concomitant]
     Active Substance: DULOXETINE
     Dosage: 30 MG, QD
     Route: 048
  9. ASPIRIN. [Concomitant]
     Active Substance: ASPIRIN
     Dosage: 81 MG, QD
  10. EPIPEN [Concomitant]
     Active Substance: EPINEPHRINE
     Dosage: 0.3 MG, PRN
     Route: 030
  11. SYMBICORT [Concomitant]
     Active Substance: BUDESONIDE\FORMOTEROL FUMARATE DIHYDRATE
     Dosage: 2 PUFFS BID
  12. VITAMIN D3 [Concomitant]
     Active Substance: CHOLECALCIFEROL
     Dosage: 1000 IU, QD
     Route: 048
  13. JAKAFI [Suspect]
     Active Substance: RUXOLITINIB
     Indication: MYELOFIBROSIS
     Dosage: 20 MG, BID
     Route: 048
     Dates: start: 201401
  14. PROBIOTIC                          /06395501/ [Concomitant]

REACTIONS (10)
  - Oedema peripheral [Unknown]
  - Dyspnoea [Recovered/Resolved]
  - Chronic obstructive pulmonary disease [Unknown]
  - Night sweats [Unknown]
  - Pain in extremity [Unknown]
  - Fatigue [Unknown]
  - Intraductal proliferative breast lesion [Unknown]
  - Abdominal distension [Unknown]
  - Treatment failure [Unknown]
  - Myelofibrosis [Unknown]

NARRATIVE: CASE EVENT DATE: 20150301
